FAERS Safety Report 10687133 (Version 2)
Quarter: 2021Q1

REPORT INFORMATION
  Report Type: Spontaneous
  Country: US (occurrence: US)
  Receive Date: 20150102
  Receipt Date: 20210310
  Transmission Date: 20210419
  Serious: Yes (Other)
  Sender: FDA-Public Use
  Company Number: US-AUROBINDO-AUR-APL-2014-13365

PATIENT
  Age: 24 Year
  Sex: Female

DRUGS (4)
  1. BUPIVACAINE HYDROCHLORIDE INJECTION USP 0.75% (7.5 MG/ML) [Suspect]
     Active Substance: BUPIVACAINE HYDROCHLORIDE
     Indication: NERVE BLOCK
     Dosage: 4.5 MILLILITER
     Route: 065
  2. TRIAMCINOLONE [Suspect]
     Active Substance: TRIAMCINOLONE
     Indication: OCCIPITAL NEURALGIA
     Dosage: 0.5 ML (20 MG)
     Route: 065
  3. TRIAMCINOLONE [Suspect]
     Active Substance: TRIAMCINOLONE
     Indication: NERVE BLOCK
  4. BUPIVACAINE HYDROCHLORIDE INJECTION USP 0.75% (7.5 MG/ML) [Suspect]
     Active Substance: BUPIVACAINE HYDROCHLORIDE
     Indication: OCCIPITAL NEURALGIA

REACTIONS (9)
  - Facial paresis [Recovered/Resolved]
  - Facial asymmetry [Recovered/Resolved]
  - Facial paralysis [Recovered/Resolved]
  - Pain [Unknown]
  - Anxiety [Recovered/Resolved]
  - Paraesthesia [Recovered/Resolved]
  - Abnormal sensation in eye [Recovered/Resolved]
  - Paraesthesia oral [Recovered/Resolved]
  - Discomfort [Not Recovered/Not Resolved]
